FAERS Safety Report 10921822 (Version 1)
Quarter: 2015Q1

REPORT INFORMATION
  Report Type: Spontaneous
  Country: GB (occurrence: GB)
  Receive Date: 20150317
  Receipt Date: 20150317
  Transmission Date: 20150721
  Serious: Yes (Life-Threatening, Hospitalization, Other)
  Sender: FDA-Public Use
  Company Number: GB-WATSON-2015-05567

PATIENT
  Age: 32 Year
  Sex: Male

DRUGS (4)
  1. SIMVASTATIN (UNKNOWN) [Suspect]
     Active Substance: SIMVASTATIN
     Indication: PRODUCT USED FOR UNKNOWN INDICATION
     Dosage: 280 MG, TOTAL
     Route: 048
  2. MIRTAZAPINE. [Concomitant]
     Active Substance: MIRTAZAPINE
     Indication: DEPRESSION
     Dosage: UNK
     Route: 065
  3. BISOPROLOL (UNKNOWN) [Suspect]
     Active Substance: BISOPROLOL
     Indication: PRODUCT USED FOR UNKNOWN INDICATION
     Dosage: 200 MG, TOTAL
     Route: 048
  4. DILTIAZEM [Suspect]
     Active Substance: DILTIAZEM
     Indication: PRODUCT USED FOR UNKNOWN INDICATION
     Dosage: 5040 MG, TOTAL
     Route: 048

REACTIONS (13)
  - Bradycardia [Recovered/Resolved]
  - Hypokalaemia [Recovered/Resolved]
  - Respiratory acidosis [Recovered/Resolved]
  - Acute kidney injury [Recovering/Resolving]
  - Hyperglycaemia [Recovered/Resolved]
  - Hypothermia [Unknown]
  - Cardiac arrest [Recovered/Resolved]
  - Intentional overdose [Recovered/Resolved]
  - Atrioventricular block complete [Recovered/Resolved]
  - Rhabdomyolysis [Recovering/Resolving]
  - Metabolic acidosis [Recovered/Resolved]
  - Coma [Recovered/Resolved]
  - Hypotension [Recovered/Resolved]
